FAERS Safety Report 9402608 (Version 1)
Quarter: 2013Q3

REPORT INFORMATION
  Report Type: Spontaneous
  Country: JP (occurrence: JP)
  Receive Date: 20130716
  Receipt Date: 20130716
  Transmission Date: 20140515
  Serious: Yes (Other)
  Sender: FDA-Public Use
  Company Number: PHHY2013JP073078

PATIENT
  Age: 36 Year
  Sex: Female

DRUGS (5)
  1. METHYLPREDNISOLONE [Suspect]
     Indication: SYSTEMIC LUPUS ERYTHEMATOSUS
     Dosage: 500 MG,
  2. PREDNISOLONE [Suspect]
     Indication: SYSTEMIC LUPUS ERYTHEMATOSUS
     Dosage: 40 MG, /DAY
  3. PREDNISOLONE [Suspect]
     Dosage: 20 MG, /DAY
  4. ALBUMIN [Concomitant]
  5. DIURETICS [Concomitant]

REACTIONS (3)
  - Chorioretinopathy [Recovered/Resolved]
  - Visual acuity reduced [Recovered/Resolved]
  - Metamorphopsia [Recovered/Resolved]
